FAERS Safety Report 13260925 (Version 2)
Quarter: 2023Q2

REPORT INFORMATION
  Report Type: Spontaneous
  Country: US (occurrence: US)
  Receive Date: 20170222
  Receipt Date: 20230430
  Transmission Date: 20230721
  Serious: No
  Sender: FDA-Public Use
  Company Number: US-SA-2016SA134728

PATIENT
  Age: 51 Year
  Sex: Female

DRUGS (1)
  1. DIABETA [Suspect]
     Active Substance: GLYBURIDE
     Dosage: UNK
     Route: 065

REACTIONS (1)
  - Hypersensitivity [Unknown]
